FAERS Safety Report 9483732 (Version 3)
Quarter: 2014Q2

REPORT INFORMATION
  Report Type: Report from Study
  Country: US (occurrence: US)
  Receive Date: 20130828
  Receipt Date: 20140630
  Transmission Date: 20141212
  Serious: Yes (Hospitalization, Other)
  Sender: FDA-Public Use
  Company Number: US-ALEXION PHARMACEUTICALS INC.-A201302033

PATIENT
  Sex: 0

DRUGS (3)
  1. SOLIRIS [Suspect]
     Indication: HAEMOLYTIC URAEMIC SYNDROME
     Dosage: UNK
     Route: 042
     Dates: start: 20130806, end: 20130806
  2. TORSEMIDE [Concomitant]
     Indication: PRODUCT USED FOR UNKNOWN INDICATION
     Dosage: UNK
     Route: 048
  3. GEMCITABINE [Concomitant]
     Indication: PRODUCT USED FOR UNKNOWN INDICATION
     Dosage: UNK
     Route: 065

REACTIONS (7)
  - Fluid overload [Recovering/Resolving]
  - Biopsy kidney [Unknown]
  - Pleural effusion [Unknown]
  - Blood pressure inadequately controlled [Unknown]
  - Escherichia bacteraemia [Unknown]
  - Dyspnoea [Recovering/Resolving]
  - Haemoglobin decreased [Unknown]
